FAERS Safety Report 7920080-6 (Version None)
Quarter: 2011Q4

REPORT INFORMATION
  Report Type: 
  Country: None (occurrence: None)
  Receive Date: 20111115
  Receipt Date: 20111031
  Transmission Date: 20120403
  Serious: Yes (Other)
  Sender: FDA-Public Use
  Company Number: FK201102521

PATIENT
  Age: 24 Year
  Sex: Female

DRUGS (4)
  1. METHYLPREDNISOLONE [Suspect]
     Indication: STEROID THERAPY
     Dosage: 0.5 GM PER DAY X 6 DAYS, INTRAVENOUS (NOT OTHERWISE SPECIFIED); 3 GM, INTRAVENOUS (NOT OTHERWISE SPE
     Route: 042
  2. ORAL CONTRACEPTION [Concomitant]
  3. BETAFERON [Concomitant]
  4. ACETAMINOPHEN [Concomitant]

REACTIONS (5)
  - HEMIPLEGIA [None]
  - CONDITION AGGRAVATED [None]
  - HEPATOTOXICITY [None]
  - HEPATITIS ACUTE [None]
  - MULTIPLE SCLEROSIS [None]
